FAERS Safety Report 7141650-1 (Version None)
Quarter: 2010Q4

REPORT INFORMATION
  Report Type: 
  Country: None (occurrence: None)
  Receive Date: 20101207
  Receipt Date: 20101025
  Transmission Date: 20110411
  Serious: Yes (Other)
  Sender: FDA-Public Use
  Company Number: PHHY2010JP66280

PATIENT
  Age: 62 Year
  Sex: Male

DRUGS (10)
  1. VOLTAREN [Suspect]
     Indication: BACK PAIN
     Dosage: 3 TO 4 TIMES A WEEK
     Route: 054
  2. VOLTAREN [Suspect]
     Dosage: 25 MG ONCE EVERY TWO DAYS
     Route: 054
  3. NU-LOTAN [Concomitant]
     Dosage: 100 MG
     Route: 048
  4. URSO 250 [Concomitant]
     Dosage: 300 MG
     Route: 048
  5. LANSOPRAZOLE [Concomitant]
     Dosage: 15 MG
     Route: 048
  6. MUCOSTA [Concomitant]
     Dosage: 300 MG
     Route: 048
  7. SOLDANA [Concomitant]
     Dosage: 12 MG
     Route: 048
  8. HALCION [Concomitant]
     Dosage: 0.25 MG
     Route: 048
  9. DEPAS [Concomitant]
     Dosage: 0.5 MG
     Route: 048
  10. CALCIUM [Concomitant]
     Route: 048

REACTIONS (2)
  - DIALYSIS [None]
  - ECZEMA [None]
